FAERS Safety Report 9154298 (Version 1)
Quarter: 2013Q1

REPORT INFORMATION
  Report Type: Spontaneous
  Country: CH (occurrence: CH)
  Receive Date: 20130311
  Receipt Date: 20130311
  Transmission Date: 20140127
  Serious: Yes (Other)
  Sender: FDA-Public Use
  Company Number: CH-JNJFOC-20130113753

PATIENT
  Sex: Female

DRUGS (1)
  1. REMICADE [Suspect]
     Indication: CROHN^S DISEASE
     Dosage: 100 MG, FREQUENCY ADJUSTED TO 4-8 WEEKS IF NECESSARY.
     Route: 042
     Dates: start: 200808

REACTIONS (1)
  - Seborrhoeic keratosis [Unknown]
